FAERS Safety Report 25412247 (Version 1)
Quarter: 2025Q2

REPORT INFORMATION
  Report Type: Spontaneous
  Country: US (occurrence: US)
  Receive Date: 20250609
  Receipt Date: 20250609
  Transmission Date: 20250717
  Serious: No
  Sender: PFIZER
  Company Number: US-PFIZER INC-202500116377

PATIENT
  Age: 57 Year
  Sex: Female

DRUGS (9)
  1. TUKYSA [Suspect]
     Active Substance: TUCATINIB
     Dosage: 200 MG, 2X/DAY
     Dates: start: 202502
  2. TUKYSA [Suspect]
     Active Substance: TUCATINIB
     Dosage: TAKE 150MG BY MOUTH TWICE DAILY
     Route: 048
     Dates: start: 20250430
  3. TRASTUZUMAB [Concomitant]
     Active Substance: TRASTUZUMAB
  4. PEMBROLIZUMAB [Concomitant]
     Active Substance: PEMBROLIZUMAB
  5. PERTUZUMAB [Concomitant]
     Active Substance: PERTUZUMAB
  6. MARGETUXIMAB [Concomitant]
     Active Substance: MARGETUXIMAB
  7. TRASTUZUMAB DERUXTECAN [Concomitant]
     Active Substance: TRASTUZUMAB DERUXTECAN
  8. LAPATINIB [Concomitant]
     Active Substance: LAPATINIB
  9. NERATINIB [Concomitant]
     Active Substance: NERATINIB

REACTIONS (3)
  - Nausea [Recovering/Resolving]
  - Vomiting [Unknown]
  - Fatigue [Not Recovered/Not Resolved]

NARRATIVE: CASE EVENT DATE: 20250101
